FAERS Safety Report 13564228 (Version 1)
Quarter: 2017Q2

REPORT INFORMATION
  Report Type: Spontaneous
  Country: PE (occurrence: PE)
  Receive Date: 20170519
  Receipt Date: 20170519
  Transmission Date: 20170830
  Serious: Yes (Disabling)
  Sender: FDA-Public Use
  Company Number: PE-DSJP-DSU-2017-115393

PATIENT

DRUGS (1)
  1. OLMETEC ANLO [Suspect]
     Active Substance: AMLODIPINE BESYLATE\OLMESARTAN MEDOXOMIL
     Dosage: 40/10 MG, QD
     Route: 048
     Dates: start: 201611, end: 201702

REACTIONS (2)
  - Treatment noncompliance [Unknown]
  - Upper limb fracture [Not Recovered/Not Resolved]

NARRATIVE: CASE EVENT DATE: 2017
